FAERS Safety Report 5034264-0 (Version None)
Quarter: 2006Q2

REPORT INFORMATION
  Report Type: 
  Country: None (occurrence: None)
  Receive Date: 20060626
  Receipt Date: 20060531
  Transmission Date: 20061013
  Serious: Yes (Death, Hospitalization)
  Sender: FDA-Public Use
  Company Number: JP-MERCK-0606USA00614

PATIENT
  Age: 62 Year
  Sex: Male

DRUGS (9)
  1. PEPCID [Suspect]
     Route: 042
     Dates: start: 20060521, end: 20060529
  2. SOLITA T-1 [Concomitant]
     Route: 065
     Dates: start: 20060521, end: 20060521
  3. RADICUT [Concomitant]
     Route: 065
     Dates: start: 20060521, end: 20060524
  4. GLYCEOL [Concomitant]
     Route: 065
     Dates: start: 20060521, end: 20060531
  5. SULPERAZON [Concomitant]
     Route: 065
     Dates: start: 20060523, end: 20060529
  6. DESLANOSIDE [Concomitant]
     Route: 042
     Dates: start: 20060523, end: 20060531
  7. VASOLAN [Concomitant]
     Route: 042
     Dates: start: 20060523, end: 20060524
  8. FOY [Concomitant]
     Route: 065
     Dates: start: 20060525, end: 20060531
  9. [THERAPY UNSPECIFIED] [Concomitant]
     Route: 065
     Dates: start: 20060521

REACTIONS (2)
  - BLOOD CREATINE PHOSPHOKINASE INCREASED [None]
  - DEATH [None]
